FAERS Safety Report 25379063 (Version 1)
Quarter: 2025Q2

REPORT INFORMATION
  Report Type: Spontaneous
  Country: US (occurrence: US)
  Receive Date: 20250530
  Receipt Date: 20250530
  Transmission Date: 20250717
  Serious: Yes (Other)
  Sender: DR REDDYS
  Company Number: US-DRL-USA-USA/2025/05/007787

PATIENT
  Age: 5 Year
  Sex: Male

DRUGS (7)
  1. CYCLOSPORINE [Suspect]
     Active Substance: CYCLOSPORINE
     Indication: Still^s disease
  2. ANAKINRA [Concomitant]
     Active Substance: ANAKINRA
     Indication: Still^s disease
  3. TOCILIZUMAB [Concomitant]
     Active Substance: TOCILIZUMAB
     Indication: Still^s disease
  4. CANAKINUMAB [Concomitant]
     Active Substance: CANAKINUMAB
     Indication: Still^s disease
  5. MYCOPHENOLIC ACID [Concomitant]
     Active Substance: MYCOPHENOLIC ACID
     Indication: Still^s disease
  6. RILONACEPT [Concomitant]
     Active Substance: RILONACEPT
     Indication: Still^s disease
  7. TOFACITINIB [Concomitant]
     Active Substance: TOFACITINIB
     Indication: Still^s disease

REACTIONS (1)
  - Drug ineffective for unapproved indication [Unknown]
